FAERS Safety Report 4471206-0 (Version None)
Quarter: 2004Q4

REPORT INFORMATION
  Report Type: 
  Country: None (occurrence: None)
  Receive Date: 20041011
  Receipt Date: 20021231
  Transmission Date: 20050328
  Serious: Yes (Death)
  Sender: FDA-Public Use
  Company Number: US-MERCK-0212USA02514

PATIENT
  Age: 33 Year
  Sex: Female
  Weight: 57 kg

DRUGS (8)
  1. VIOXX [Suspect]
     Indication: ARTHRALGIA
     Route: 048
     Dates: start: 20020222, end: 20020301
  2. VIOXX [Suspect]
     Route: 048
     Dates: start: 20020801, end: 20020801
  3. VIOXX [Suspect]
     Route: 048
     Dates: start: 20020826, end: 20020829
  4. VIOXX [Suspect]
     Route: 048
     Dates: start: 20020830, end: 20020902
  5. VIOXX [Suspect]
     Route: 048
     Dates: start: 20020222, end: 20020301
  6. VIOXX [Suspect]
     Route: 048
     Dates: start: 20020801, end: 20020801
  7. VIOXX [Suspect]
     Route: 048
     Dates: start: 20020826, end: 20020829
  8. VIOXX [Suspect]
     Route: 048
     Dates: start: 20020830, end: 20020902

REACTIONS (3)
  - ARRHYTHMIA [None]
  - SUDDEN DEATH [None]
  - VENTRICULAR FIBRILLATION [None]
